FAERS Safety Report 14441962 (Version 1)
Quarter: 2018Q1

REPORT INFORMATION
  Report Type: Spontaneous
  Country: US (occurrence: US)
  Receive Date: 20180125
  Receipt Date: 20180125
  Transmission Date: 20180509
  Serious: Yes (Hospitalization)
  Sender: FDA-Public Use
  Company Number: US-PFIZER INC-2017522660

PATIENT
  Age: 86 Year
  Sex: Female

DRUGS (1)
  1. REVATIO [Suspect]
     Active Substance: SILDENAFIL CITRATE
     Dosage: UNK

REACTIONS (6)
  - Pyrexia [Unknown]
  - Torsade de pointes [Unknown]
  - Sepsis [Unknown]
  - Urinary tract infection [Unknown]
  - Cardiac arrest [Unknown]
  - Heart rate increased [Unknown]
